FAERS Safety Report 9478080 (Version 1)
Quarter: 2013Q3

REPORT INFORMATION
  Report Type: Spontaneous
  Country: US (occurrence: US)
  Receive Date: 20130827
  Receipt Date: 20130827
  Transmission Date: 20140515
  Serious: No
  Sender: FDA-Public Use
  Company Number: US-009507513-1308USA008161

PATIENT
  Age: 57 Year
  Sex: Female

DRUGS (1)
  1. HYZAAR [Suspect]
     Dosage: UNK
     Route: 048
     Dates: start: 201305, end: 201305

REACTIONS (2)
  - Dizziness [Recovering/Resolving]
  - Nausea [Recovering/Resolving]
